FAERS Safety Report 13498559 (Version 1)
Quarter: 2017Q2

REPORT INFORMATION
  Report Type: Spontaneous
  Country: IN (occurrence: IN)
  Receive Date: 20170501
  Receipt Date: 20170501
  Transmission Date: 20170830
  Serious: Yes (Death, Life-Threatening, Hospitalization, Other)
  Sender: FDA-Public Use
  Company Number: IN-SUN PHARMACEUTICAL INDUSTRIES LTD-2017R1-139390

PATIENT
  Age: 62 Year
  Sex: Male

DRUGS (1)
  1. ALLOPURINOL. [Suspect]
     Active Substance: ALLOPURINOL
     Indication: ARTHRALGIA
     Dosage: 300 MG, DAILY
     Route: 065

REACTIONS (6)
  - Septic shock [Fatal]
  - Acute kidney injury [Unknown]
  - Pseudomonas infection [Unknown]
  - Toxic epidermal necrolysis [Fatal]
  - Pneumonia [Unknown]
  - Candida infection [Unknown]
